FAERS Safety Report 16474139 (Version 1)
Quarter: 2019Q2

REPORT INFORMATION
  Report Type: Spontaneous
  Country: US (occurrence: US)
  Receive Date: 20190625
  Receipt Date: 20190625
  Transmission Date: 20190711
  Serious: No
  Sender: FDA-Public Use
  Company Number: US-PFIZER INC-2019263187

PATIENT
  Age: 62 Year
  Sex: Female
  Weight: 83.91 kg

DRUGS (2)
  1. FASLODEX [Concomitant]
     Active Substance: FULVESTRANT
     Indication: HORMONE SUPPRESSION THERAPY
     Dosage: UNK, MONTHLY (INJECTION ONCE PER MONTH)
     Dates: start: 201808
  2. IBRANCE [Suspect]
     Active Substance: PALBOCICLIB
     Indication: BREAST CANCER METASTATIC
     Dosage: 100 MG, CYCLIC (100 MG CAPSULE, 1 CAPSULE DAILY BY MOUTH FOR 3 WEEKS AND THEN OFF FOR A WEEK)
     Route: 048
     Dates: start: 201808

REACTIONS (6)
  - Malaise [Unknown]
  - Product storage error [Recovered/Resolved]
  - Dyspnoea [Unknown]
  - Neoplasm progression [Unknown]
  - Fatigue [Unknown]
  - Poor quality product administered [Recovered/Resolved]

NARRATIVE: CASE EVENT DATE: 201802
